FAERS Safety Report 16032291 (Version 2)
Quarter: 2019Q2

REPORT INFORMATION
  Report Type: Spontaneous
  Country: US (occurrence: US)
  Receive Date: 20190304
  Receipt Date: 20190605
  Transmission Date: 20190711
  Serious: Yes (Hospitalization, Other)
  Sender: FDA-Public Use
  Company Number: US-LUNDBECK-DKLU2061265

PATIENT
  Age: 82 Year
  Sex: Male

DRUGS (4)
  1. SINEMET [Concomitant]
     Active Substance: CARBIDOPA\LEVODOPA
     Indication: PRODUCT USED FOR UNKNOWN INDICATION
     Route: 065
  2. NORTHERA [Suspect]
     Active Substance: DROXIDOPA
     Indication: PARKINSON^S DISEASE
     Route: 048
     Dates: start: 20170712
  3. NORTHERA [Suspect]
     Active Substance: DROXIDOPA
     Indication: ORTHOSTATIC HYPOTENSION
     Dosage: 4-6 TABS TID
     Route: 048
     Dates: start: 20170713
  4. NORTHERA [Suspect]
     Active Substance: DROXIDOPA
     Route: 048

REACTIONS (7)
  - Fatigue [Unknown]
  - Speech disorder [Unknown]
  - Muscle twitching [Unknown]
  - Condition aggravated [Unknown]
  - Tremor [Unknown]
  - Dyskinesia [Unknown]
  - Insomnia [Unknown]

NARRATIVE: CASE EVENT DATE: 20190215
